FAERS Safety Report 20684773 (Version 1)
Quarter: 2022Q2

REPORT INFORMATION
  Report Type: Spontaneous
  Country: US (occurrence: None)
  Receive Date: 20220406
  Receipt Date: 20220406
  Transmission Date: 20220721
  Serious: No
  Sender: FDA-Public Use
  Company Number: None

PATIENT
  Age: 49 Year
  Sex: Female
  Weight: 56.25 kg

DRUGS (1)
  1. SUAVE FRESH AEROSOL ANTIPERSPIRANT AND DEODORANT [Suspect]
     Active Substance: ALUMINUM CHLOROHYDRATE
     Indication: Skin odour abnormal
     Route: 061
     Dates: start: 20220310, end: 20220312

REACTIONS (3)
  - Axillary pain [None]
  - Axillary mass [None]
  - Sweat gland disorder [None]

NARRATIVE: CASE EVENT DATE: 20220308
